FAERS Safety Report 11080746 (Version 1)
Quarter: 2015Q2

REPORT INFORMATION
  Report Type: Spontaneous
  Country: US (occurrence: None)
  Receive Date: 20150430
  Receipt Date: 20150430
  Transmission Date: 20150821
  Serious: Yes (Life-Threatening, Hospitalization, Other)
  Sender: FDA-Public Use
  Company Number: None

PATIENT
  Age: 5 Year
  Sex: Male
  Weight: 19.3 kg

DRUGS (3)
  1. CYTARABINE. [Concomitant]
     Active Substance: CYTARABINE
  2. VINCRISTINE [Concomitant]
     Active Substance: VINCRISTINE
  3. ONCASPAR [Suspect]
     Active Substance: PEGASPARGASE
     Indication: ACUTE LYMPHOCYTIC LEUKAEMIA
     Dosage: 2500 UNITS/M2, ONCE, INTRAVENOUS
     Route: 042
     Dates: start: 20150324, end: 20150324

REACTIONS (9)
  - Febrile neutropenia [None]
  - Splenic embolism [None]
  - Cardiac ventricular thrombosis [None]
  - Cerebral infarction [None]
  - Retinal artery embolism [None]
  - Tachycardia [None]
  - Pneumonia [None]
  - Pulmonary artery thrombosis [None]
  - Cardiac arrest [None]

NARRATIVE: CASE EVENT DATE: 20150411
